FAERS Safety Report 7296878-7 (Version None)
Quarter: 2011Q1

REPORT INFORMATION
  Report Type: 
  Country: None (occurrence: None)
  Receive Date: 20110204
  Receipt Date: 20110127
  Transmission Date: 20110831
  Serious: Yes (Hospitalization)
  Sender: FDA-Public Use
  Company Number: 2011SP003888

PATIENT
  Age: 40 Year
  Sex: Female

DRUGS (1)
  1. ORGARAN [Suspect]
     Indication: PRODUCT USED FOR UNKNOWN INDICATION
     Dosage: 750 IU, BID; PARN
     Route: 051
     Dates: start: 20101108, end: 20101111

REACTIONS (5)
  - INJECTION SITE EXTRAVASATION [None]
  - INJECTION SITE RASH [None]
  - INJECTION SITE ERYTHEMA [None]
  - EOSINOPHILIA [None]
  - RASH PRURITIC [None]
